FAERS Safety Report 20086004 (Version 4)
Quarter: 2022Q2

REPORT INFORMATION
  Report Type: Spontaneous
  Country: US (occurrence: US)
  Receive Date: 20211118
  Receipt Date: 20220401
  Transmission Date: 20220721
  Serious: No
  Sender: FDA-Public Use
  Company Number: US-PFIZER INC-202101527814

PATIENT
  Age: 34 Year
  Sex: Female
  Weight: 177 kg

DRUGS (2)
  1. DEPO-PROVERA [Suspect]
     Active Substance: MEDROXYPROGESTERONE ACETATE
     Indication: Contraception
     Dosage: EVERY 12 WEEKS
  2. DEPO-PROVERA [Suspect]
     Active Substance: MEDROXYPROGESTERONE ACETATE
     Dosage: 104MG/0.65ML

REACTIONS (7)
  - Drug dose omission by device [Unknown]
  - Needle issue [Unknown]
  - Syringe issue [Unknown]
  - Device malfunction [Unknown]
  - Device breakage [Unknown]
  - Product contamination [Unknown]
  - Product administration error [Unknown]

NARRATIVE: CASE EVENT DATE: 20211001
